FAERS Safety Report 4826018-2 (Version None)
Quarter: 2005Q4

REPORT INFORMATION
  Report Type: 
  Country: None (occurrence: None)
  Receive Date: 20051111
  Receipt Date: 20050802
  Transmission Date: 20060501
  Serious: Yes (Death, Hospitalization)
  Sender: FDA-Public Use
  Company Number: US-MERCK-0508USA01119

PATIENT
  Age: 90 Year
  Sex: Female
  Weight: 86 kg

DRUGS (6)
  1. VIOXX [Suspect]
     Indication: ARTHRITIS
     Route: 048
     Dates: start: 19990615, end: 20030331
  2. COUMADIN [Concomitant]
     Route: 065
     Dates: start: 19990529, end: 20000323
  3. POTASSIUM CHLORIDE [Concomitant]
     Route: 065
  4. TOPROL-XL [Concomitant]
     Route: 065
     Dates: start: 19980913, end: 20021201
  5. FUROSEMIDE [Concomitant]
     Route: 065
  6. IBUPROFEN [Concomitant]
     Indication: PAIN
     Route: 065
     Dates: start: 19971123, end: 20030331

REACTIONS (11)
  - ANAEMIA [None]
  - ATRIAL FIBRILLATION [None]
  - CELLULITIS [None]
  - DEATH [None]
  - DEHYDRATION [None]
  - DEMENTIA [None]
  - FALL [None]
  - MENTAL DISORDER DUE TO A GENERAL MEDICAL CONDITION [None]
  - METABOLIC ENCEPHALOPATHY [None]
  - RENAL FAILURE [None]
  - RESPIRATORY FAILURE [None]
